FAERS Safety Report 6358471-X (Version None)
Quarter: 2009Q3

REPORT INFORMATION
  Report Type: 
  Country: None (occurrence: None)
  Receive Date: 20090916
  Receipt Date: 20081126
  Transmission Date: 20100115
  Serious: No
  Sender: FDA-Public Use
  Company Number: US-AMGEN-KDL321015

PATIENT
  Sex: Female

DRUGS (2)
  1. NEUPOGEN [Suspect]
     Indication: NEUTROPENIA
     Dates: start: 20081121
  2. ENBREL [Suspect]
     Indication: RHEUMATOID ARTHRITIS

REACTIONS (2)
  - INJECTION SITE IRRITATION [None]
  - WHITE BLOOD CELL COUNT DECREASED [None]
